FAERS Safety Report 24962724 (Version 1)
Quarter: 2025Q1

REPORT INFORMATION
  Report Type: Report from Study
  Country: US (occurrence: US)
  Receive Date: 20250212
  Receipt Date: 20250212
  Transmission Date: 20250409
  Serious: Yes (Hospitalization)
  Sender: ABBVIE
  Company Number: US-ABBVIE-6111582

PATIENT
  Sex: Female

DRUGS (1)
  1. CREON [Suspect]
     Active Substance: PANCRELIPASE AMYLASE\PANCRELIPASE LIPASE\PANCRELIPASE PROTEASE
     Indication: Product used for unknown indication
     Route: 048
     Dates: start: 20220101

REACTIONS (6)
  - Gastrointestinal disorder [Recovering/Resolving]
  - Unevaluable event [Unknown]
  - Weight decreased [Unknown]
  - Impaired gastric emptying [Unknown]
  - Nausea [Unknown]
  - Autoimmune disorder [Unknown]
